FAERS Safety Report 4436597-5 (Version None)
Quarter: 2004Q3

REPORT INFORMATION
  Report Type: 
  Country: None (occurrence: None)
  Receive Date: 20040830
  Receipt Date: 20040713
  Transmission Date: 20050211
  Serious: Yes (Disabling)
  Sender: FDA-Public Use
  Company Number: US-BRISTOL-MYERS SQUIBB COMPANY-12638573

PATIENT
  Age: 83 Year
  Sex: Female

DRUGS (9)
  1. ABILIFY [Suspect]
     Indication: PSYCHOTIC DISORDER
     Route: 048
     Dates: start: 20040413, end: 20040611
  2. PAXIL [Concomitant]
  3. SINEMET [Concomitant]
     Dosage: 25/100 MG ONCE A DAY; 50/200 MG FIVE DAILY
  4. AMANTADINE HCL [Concomitant]
  5. PREVACID [Concomitant]
  6. POTASSIUM [Concomitant]
  7. MULTI-VITAMINS [Concomitant]
  8. REQUIP [Concomitant]
  9. DIURETIC [Concomitant]

REACTIONS (1)
  - PARKINSON'S DISEASE [None]
